FAERS Safety Report 11661286 (Version 1)
Quarter: 2015Q4

REPORT INFORMATION
  Report Type: Spontaneous
  Country: DE (occurrence: DE)
  Receive Date: 20151026
  Receipt Date: 20151026
  Transmission Date: 20160304
  Serious: Yes (Death)
  Sender: FDA-Public Use
  Company Number: DE-TEVA-602079GER

PATIENT
  Age: 16 Year
  Sex: Female

DRUGS (4)
  1. INTERFERON BETA-1A [Concomitant]
     Active Substance: INTERFERON BETA-1A
     Indication: RELAPSING-REMITTING MULTIPLE SCLEROSIS
  2. MITOXANTRONE [Suspect]
     Active Substance: MITOXANTRONE HYDROCHLORIDE
     Dosage: 12MG/M2 AT 3-MONTHLY INTERVALS
     Route: 065
  3. MITOXANTRONE [Suspect]
     Active Substance: MITOXANTRONE HYDROCHLORIDE
     Dosage: CUMULATIVE DOSE: 96MG/M2 BODY SURFACE
     Route: 065
  4. MITOXANTRONE [Suspect]
     Active Substance: MITOXANTRONE HYDROCHLORIDE
     Indication: RELAPSING-REMITTING MULTIPLE SCLEROSIS
     Dosage: BEGINNING WITH SINGLE DOSES
     Route: 065

REACTIONS (2)
  - Tumour lysis syndrome [Fatal]
  - Acute myeloid leukaemia [Fatal]
